FAERS Safety Report 6276544-7 (Version None)
Quarter: 2009Q3

REPORT INFORMATION
  Report Type: 
  Country: None (occurrence: None)
  Receive Date: 20090722
  Receipt Date: 19960708
  Transmission Date: 20100115
  Serious: No
  Sender: FDA-Public Use
  Company Number: US-BRISTOL-MYERS SQUIBB COMPANY-11378437

PATIENT
  Age: 27 Year
  Sex: Female

DRUGS (1)
  1. COUMADIN [Suspect]
     Indication: VENOUS THROMBOSIS
     Dosage: 10 MG QD
     Route: 048
     Dates: start: 19960315, end: 19960701

REACTIONS (1)
  - PREGNANCY [None]
